FAERS Safety Report 6556737-1 (Version None)
Quarter: 2010Q1

REPORT INFORMATION
  Report Type: 
  Country: None (occurrence: None)
  Receive Date: 20100128
  Receipt Date: 20100119
  Transmission Date: 20100710
  Serious: Yes (Hospitalization, Other)
  Sender: FDA-Public Use
  Company Number: BR-ABBOTT-09P-020-0603866-00

PATIENT
  Sex: Female
  Weight: 49 kg

DRUGS (11)
  1. HUMIRA [Suspect]
     Indication: RHEUMATOID ARTHRITIS
     Route: 058
  2. HUMIRA [Suspect]
     Dosage: EVERY 15 OR 16 DAYS
     Route: 058
  3. HUMIRA [Suspect]
     Route: 058
  4. LOSARTAN POTASSIUM [Concomitant]
     Indication: HYPERTENSION
     Route: 048
     Dates: start: 20040101
  5. BUFFERIN CARDIO [Concomitant]
     Indication: CEREBROVASCULAR ACCIDENT PROPHYLAXIS
     Route: 048
     Dates: start: 20050101
  6. METHOTREXATE [Concomitant]
     Indication: RHEUMATOID ARTHRITIS
     Route: 048
  7. PREDNISONE [Concomitant]
     Indication: RHEUMATOID ARTHRITIS
     Dosage: 0.5 PER DAY
     Route: 048
  8. BONALEN [Concomitant]
     Indication: PROPHYLAXIS
     Route: 048
     Dates: start: 20090101
  9. BONALEN [Concomitant]
     Indication: BONE EROSION
  10. DICLOFENAC [Concomitant]
     Indication: ANTIINFLAMMATORY THERAPY
     Route: 048
  11. CALCIUM/VITAMIN (600MG/-) [Concomitant]
     Indication: BONE DISORDER

REACTIONS (7)
  - BLOOD CHOLESTEROL ABNORMAL [None]
  - FALL [None]
  - FEMUR FRACTURE [None]
  - MOBILITY DECREASED [None]
  - OSTEOARTHRITIS [None]
  - PAIN [None]
  - UNEVALUABLE EVENT [None]
